FAERS Safety Report 11565655 (Version 1)
Quarter: 2015Q3

REPORT INFORMATION
  Report Type: Spontaneous
  Country: US (occurrence: US)
  Receive Date: 20150916
  Receipt Date: 20150916
  Transmission Date: 20151125
  Serious: No
  Sender: FDA-Public Use
  Company Number: US-ELI_LILLY_AND_COMPANY-US200905001049

PATIENT
  Age: 78 Year
  Sex: Female

DRUGS (4)
  1. VITAMIN D [Concomitant]
     Active Substance: CHOLECALCIFEROL
  2. FORTEO [Suspect]
     Active Substance: TERIPARATIDE
     Dosage: UNK, UNK
     Dates: end: 20090514
  3. MULTIVITAMIN [Concomitant]
     Active Substance: VITAMINS
  4. CALTRATE [Concomitant]
     Active Substance: CALCIUM CARBONATE

REACTIONS (7)
  - Pain [Recovering/Resolving]
  - Asthenia [Recovering/Resolving]
  - Eating disorder [Unknown]
  - Speech disorder [Not Recovered/Not Resolved]
  - Vitamin B12 abnormal [Unknown]
  - Sudden onset of sleep [Unknown]
  - Neuralgia [Recovering/Resolving]

NARRATIVE: CASE EVENT DATE: 200904
